FAERS Safety Report 13007899 (Version 1)
Quarter: 2016Q4

REPORT INFORMATION
  Report Type: Spontaneous
  Country: DE (occurrence: DE)
  Receive Date: 20161208
  Receipt Date: 20161208
  Transmission Date: 20170207
  Serious: Yes (Congenital Anomaly, Other)
  Sender: FDA-Public Use
  Company Number: DE-STRIDES ARCOLAB LIMITED-2016SP019099

PATIENT

DRUGS (5)
  1. FOSFOMYCIN [Suspect]
     Active Substance: FOSFOMYCIN
     Dosage: UNK (IN 14TH GESTATIONAL WEEK)
     Route: 064
  2. TACROLIMUS. [Suspect]
     Active Substance: TACROLIMUS
     Dosage: UNK
     Route: 064
  3. AZATHIOPRINE. [Suspect]
     Active Substance: AZATHIOPRINE
     Dosage: UNK
     Route: 064
  4. PREDNISOLONE. [Suspect]
     Active Substance: PREDNISOLONE
     Dosage: UNK
     Route: 064
  5. MYCOPHENOLATE MOFETIL. [Suspect]
     Active Substance: MYCOPHENOLATE MOFETIL
     Dosage: UNK
     Route: 064

REACTIONS (4)
  - Congenital hydronephrosis [Unknown]
  - Autism [Unknown]
  - Foetal exposure during pregnancy [Unknown]
  - Premature baby [Unknown]
